FAERS Safety Report 10652942 (Version 1)
Quarter: 2014Q4

REPORT INFORMATION
  Report Type: Spontaneous
  Country: US (occurrence: US)
  Receive Date: 20141215
  Receipt Date: 20141215
  Transmission Date: 20150529
  Serious: No
  Sender: FDA-Public Use
  Company Number: US-PFIZER INC-2014338478

PATIENT
  Sex: Female

DRUGS (1)
  1. ADVIL [Suspect]
     Active Substance: IBUPROFEN
     Dosage: 400 MG (2 TABLETS OF 200 MG), UNK

REACTIONS (5)
  - Rash [Unknown]
  - Lip swelling [Unknown]
  - Local reaction [Unknown]
  - Lip pruritus [Unknown]
  - Erythema [Unknown]
